FAERS Safety Report 5941963-2 (Version None)
Quarter: 2008Q4

REPORT INFORMATION
  Report Type: 
  Country: None (occurrence: None)
  Receive Date: 20081105
  Receipt Date: 20080714
  Transmission Date: 20090506
  Serious: Yes (Hospitalization, Disabling, Other)
  Sender: FDA-Public Use
  Company Number: US-MERCK-0806USA02887

PATIENT
  Age: 65 Year
  Sex: Female
  Weight: 143 kg

DRUGS (8)
  1. JANUMET [Suspect]
     Indication: DIABETES MELLITUS
     Route: 048
     Dates: start: 20080526, end: 20080601
  2. SYNTHROID [Concomitant]
     Indication: HYPOTHYROIDISM
     Route: 065
  3. HUMALOG [Concomitant]
     Indication: DIABETES MELLITUS
     Route: 065
  4. HUMULIN N [Concomitant]
     Indication: DIABETES MELLITUS
     Route: 065
  5. ENALAPRIL MALEATE [Concomitant]
     Indication: DIABETES MELLITUS
     Route: 065
  6. ENALAPRIL MALEATE [Concomitant]
     Indication: HYPERTENSION
     Route: 065
  7. PRAVASTATIN SODIUM [Concomitant]
     Indication: DIABETES MELLITUS
     Route: 065
  8. PRAVASTATIN SODIUM [Concomitant]
     Indication: DYSLIPIDAEMIA
     Route: 065

REACTIONS (4)
  - ABDOMINAL PAIN [None]
  - BACK PAIN [None]
  - STASIS DERMATITIS [None]
  - URINARY TRACT INFECTION [None]
